FAERS Safety Report 6126687-3 (Version None)
Quarter: 2009Q1

REPORT INFORMATION
  Report Type: 
  Country: None (occurrence: None)
  Receive Date: 20090320
  Receipt Date: 20090306
  Transmission Date: 20090719
  Serious: Yes (Hospitalization)
  Sender: FDA-Public Use
  Company Number: CA-PFIZER INC-2009181735

PATIENT

DRUGS (2)
  1. SUNITINIB MALATE [Suspect]
     Indication: PROSTATE CANCER
     Dosage: 50 MG, 1X/DAY
     Dates: start: 20090212, end: 20090303
  2. LEUPRORELIN ACETATE [Suspect]
     Indication: PROSTATE CANCER
     Dosage: UNK
     Route: 058
     Dates: start: 20090211

REACTIONS (1)
  - URINARY TRACT INFECTION [None]
